FAERS Safety Report 15924581 (Version 1)
Quarter: 2019Q1

REPORT INFORMATION
  Report Type: Spontaneous
  Country: FR (occurrence: FR)
  Receive Date: 20190206
  Receipt Date: 20190206
  Transmission Date: 20190417
  Serious: Yes (Other)
  Sender: FDA-Public Use
  Company Number: FR-AUROBINDO-AUR-APL-2019-005484

PATIENT

DRUGS (3)
  1. CISPLATINE MYLAN [Suspect]
     Active Substance: CISPLATIN
     Indication: CERVIX CARCINOMA
     Dosage: 75 MILLIGRAM, CYCLICAL
     Route: 042
     Dates: start: 20181203, end: 20181203
  2. ONDANSETRON [Suspect]
     Active Substance: ONDANSETRON
     Indication: PROPHYLAXIS
     Dosage: 16 MILLIGRAM, ONCE A DAY, MATIN ET SOIR
     Route: 048
     Dates: start: 20181203, end: 20181203
  3. EMEND [Suspect]
     Active Substance: APREPITANT
     Indication: PROPHYLAXIS
     Dosage: 125 MILLIGRAM, ONCE A DAY
     Route: 048
     Dates: start: 20181203, end: 20181208

REACTIONS (7)
  - Hypersensitivity [Recovered/Resolved]
  - Abdominal pain [Recovered/Resolved]
  - Malaise [Recovered/Resolved]
  - Nausea [Recovered/Resolved]
  - Vomiting [Recovered/Resolved]
  - Laryngeal discomfort [Recovered/Resolved]
  - Erythema [Recovered/Resolved]

NARRATIVE: CASE EVENT DATE: 20181203
